FAERS Safety Report 20095932 (Version 1)
Quarter: 2021Q4

REPORT INFORMATION
  Report Type: Spontaneous
  Country: US (occurrence: None)
  Receive Date: 20211119
  Receipt Date: 20211119
  Transmission Date: 20220303
  Serious: Yes (Hospitalization)
  Sender: FDA-Public Use
  Company Number: None

PATIENT
  Age: 83 Year
  Sex: Female
  Weight: 51.1 kg

DRUGS (12)
  1. CASIRIVIMAB\IMDEVIMAB [Suspect]
     Active Substance: CASIRIVIMAB\IMDEVIMAB
     Indication: COVID-19
     Route: 042
     Dates: end: 20211116
  2. BENZTROPINE [Concomitant]
     Active Substance: BENZTROPINE
  3. CALCIUM\VITAMIN D [Concomitant]
     Active Substance: CALCIUM\VITAMIN D
  4. DIAZEPAM [Concomitant]
     Active Substance: DIAZEPAM
  5. GABAPENTIN [Concomitant]
     Active Substance: GABAPENTIN
  6. MAGNESIUM OXIDE [Concomitant]
     Active Substance: MAGNESIUM OXIDE
  7. POLYETHYLENE GLYCOLS [Concomitant]
     Active Substance: POLYETHYLENE GLYCOLS
  8. MORPHINE [Concomitant]
     Active Substance: MORPHINE
  9. PRIMIDONE [Concomitant]
     Active Substance: PRIMIDONE
  10. ASCORBIC ACID [Concomitant]
     Active Substance: ASCORBIC ACID
  11. vitamin  E [Concomitant]
  12. ZINC SULFATE [Concomitant]
     Active Substance: ZINC SULFATE

REACTIONS (5)
  - COVID-19 [None]
  - Dyspnoea [None]
  - Hypoxia [None]
  - Abdominal discomfort [None]
  - Diarrhoea [None]

NARRATIVE: CASE EVENT DATE: 20210118
